FAERS Safety Report 7936123 (Version 2)
Quarter: 2012Q4

REPORT INFORMATION
  Report Type: 
  Country: GB (occurrence: GB)
  Receive Date: 20110509
  Receipt Date: 20121005
  Transmission Date: 20130627
  Serious: Yes (Other)
  Sender: FDA-Public Use
  Company Number: GB-TEVA-279628ISR

PATIENT
  Age: 35 Year
  Sex: Male

DRUGS (4)
  1. DIAZEPAM [Suspect]
  2. ETHANOL [Interacting]
  3. ZAPONEX [Suspect]
     Route: 048
     Dates: start: 20100803, end: 201104
  4. ZAPONEX [Suspect]
     Route: 048
     Dates: start: 20110418

REACTIONS (8)
  - Renal failure acute [Unknown]
  - Alcohol interaction [Unknown]
  - Circulatory collapse [Unknown]
  - Drug interaction [Unknown]
  - General physical health deterioration [Unknown]
  - Overdose [Unknown]
  - Dysphagia [Unknown]
  - Alcohol interaction [Unknown]
